FAERS Safety Report 23316113 (Version 1)
Quarter: 2023Q4

REPORT INFORMATION
  Report Type: Spontaneous
  Country: SE (occurrence: SE)
  Receive Date: 20231219
  Receipt Date: 20231219
  Transmission Date: 20240110
  Serious: Yes (Disabling)
  Sender: FDA-Public Use
  Company Number: None

PATIENT
  Age: 4 Year
  Sex: Female

DRUGS (2)
  1. CYMBALTA [Suspect]
     Active Substance: DULOXETINE HYDROCHLORIDE
     Indication: Psychiatric symptom
     Dosage: 60 MG, DAILY
     Route: 048
  2. CYMBALTA [Suspect]
     Active Substance: DULOXETINE HYDROCHLORIDE
     Dosage: 90 MG, DAILY
     Route: 048

REACTIONS (2)
  - Foetal exposure during pregnancy [Not Recovered/Not Resolved]
  - Autism spectrum disorder [Not Recovered/Not Resolved]

NARRATIVE: CASE EVENT DATE: 20231201
